FAERS Safety Report 4674545-3 (Version None)
Quarter: 2005Q2

REPORT INFORMATION
  Report Type: 
  Country: None (occurrence: None)
  Receive Date: 20050526
  Receipt Date: 20050518
  Transmission Date: 20051028
  Serious: Yes (Other)
  Sender: FDA-Public Use
  Company Number: JP-ROCHE-405363

PATIENT
  Age: 69 Year
  Sex: Female

DRUGS (1)
  1. ROCEPHIN [Suspect]
     Indication: PHARYNGITIS
     Route: 065
     Dates: start: 20050516

REACTIONS (4)
  - BLOOD PRESSURE DECREASED [None]
  - ERYTHEMA [None]
  - HYPOAESTHESIA [None]
  - NAUSEA [None]
